FAERS Safety Report 4621047-6 (Version None)
Quarter: 2005Q1

REPORT INFORMATION
  Report Type: 
  Country: None (occurrence: None)
  Receive Date: 20050325
  Receipt Date: 20050314
  Transmission Date: 20050727
  Serious: Yes (Death, Hospitalization)
  Sender: FDA-Public Use
  Company Number: 2005045460

PATIENT
  Age: 92 Year
  Sex: Female

DRUGS (1)
  1. NEURONTIN [Suspect]
     Indication: HERPES ZOSTER
     Dosage: 1800 MG (1 D)
     Dates: start: 20040601, end: 20040101

REACTIONS (1)
  - CARDIAC FAILURE [None]
